FAERS Safety Report 16167911 (Version 4)
Quarter: 2024Q1

REPORT INFORMATION
  Report Type: Report from Study
  Country: JP (occurrence: JP)
  Receive Date: 20190408
  Receipt Date: 20240227
  Transmission Date: 20240410
  Serious: Yes (Other)
  Sender: FDA-Public Use
  Company Number: JP-AEGERION PHARMACEUTICALS-AEGR-2018-00023

PATIENT

DRUGS (12)
  1. JUXTAPID [Suspect]
     Active Substance: LOMITAPIDE MESYLATE
     Indication: Type IIa hyperlipidaemia
     Dosage: 5 MG, QD, THE PATIENT TOOK JUXTAPID 2 HOURS AFTER DINNER
     Route: 048
     Dates: start: 20170513, end: 20170609
  2. JUXTAPID [Suspect]
     Active Substance: LOMITAPIDE MESYLATE
     Dosage: 10 MG, QD, THE PATIENT TOOK JUXTAPID 2 HOURS AFTER DINNER
     Route: 048
     Dates: start: 20170610
  3. JUXTAPID [Suspect]
     Active Substance: LOMITAPIDE MESYLATE
     Dosage: 15 MG, QD, THE PATIENT TOOK JUXTAPID 2 HOURS AFTER DINNER
     Route: 048
     Dates: start: 20170624
  4. JUXTAPID [Suspect]
     Active Substance: LOMITAPIDE MESYLATE
     Dosage: 20 MG, QD, THE PATIENT TOOK JUXTAPID 2 HOURS AFTER DINNER
     Route: 048
     Dates: start: 20171223, end: 20180310
  5. SINLESTAL [Concomitant]
     Indication: Product used for unknown indication
     Dosage: 500 MG, Q12 HRS
     Route: 048
  6. LIPITOR [Concomitant]
     Active Substance: ATORVASTATIN CALCIUM
     Indication: Product used for unknown indication
     Dosage: 20 MG, QD
     Route: 048
  7. AMLODIPINE [Concomitant]
     Active Substance: AMLODIPINE BESYLATE
     Indication: Hypertension
     Dosage: 2.5 MG, QD
     Route: 048
  8. ASPIRIN [Concomitant]
     Active Substance: ASPIRIN
     Indication: Cerebral artery stenosis
     Dosage: 100 MG, QD
     Route: 048
  9. WARFARIN [Concomitant]
     Active Substance: WARFARIN
     Indication: Cerebral artery stenosis
     Dosage: 4 MG, QD
     Route: 048
  10. BISOPROLOL FUMARATE [Concomitant]
     Active Substance: BISOPROLOL FUMARATE
     Indication: Hypertension
     Dosage: 2.5 MG, Q12 HRS
     Route: 048
  11. CINAL [Concomitant]
     Indication: Product used for unknown indication
     Dosage: 200 MG, Q12 HRS
     Route: 048
  12. ATORVASTATIN CALCIUM TRIHYDRATE [Concomitant]
     Active Substance: ATORVASTATIN CALCIUM TRIHYDRATE
     Indication: Hypercholesterolaemia
     Dosage: 10 MILLIGRAM, QD
     Route: 048
     Dates: start: 20191102

REACTIONS (3)
  - Eosinophilia [Recovered/Resolved]
  - Diarrhoea [Recovered/Resolved]
  - Hepatic function abnormal [Not Recovered/Not Resolved]

NARRATIVE: CASE EVENT DATE: 20180201
